FAERS Safety Report 6188126-6 (Version None)
Quarter: 2009Q2

REPORT INFORMATION
  Report Type: 
  Country: None (occurrence: None)
  Receive Date: 20090513
  Receipt Date: 20070502
  Transmission Date: 20091009
  Serious: No
  Sender: FDA-Public Use
  Company Number: A0721196A

PATIENT
  Sex: Female

DRUGS (3)
  1. DYNACIRC CR [Suspect]
     Indication: BLOOD PRESSURE
     Dosage: 10MG PER DAY
     Route: 048
     Dates: start: 20070421
  2. NORVASC [Suspect]
     Indication: BLOOD PRESSURE
     Route: 048
     Dates: end: 20070420
  3. HYDROCHLOROTHIAZIDE [Concomitant]
     Indication: DRUG USE FOR UNKNOWN INDICATION

REACTIONS (3)
  - FACE OEDEMA [None]
  - OEDEMA PERIPHERAL [None]
  - VISUAL ACUITY REDUCED [None]
